FAERS Safety Report 21633308 (Version 1)
Quarter: 2022Q4

REPORT INFORMATION
  Report Type: Spontaneous
  Country: IN (occurrence: IN)
  Receive Date: 20221123
  Receipt Date: 20221123
  Transmission Date: 20230112
  Serious: Yes (Other)
  Sender: FDA-Public Use
  Company Number: IN-PFIZER INC-PV202200106246

PATIENT
  Age: 63 Year
  Sex: Female

DRUGS (2)
  1. DACOMITINIB [Suspect]
     Active Substance: DACOMITINIB
     Indication: Non-small cell lung cancer metastatic
     Dosage: 30 MG, OD
     Route: 048
     Dates: start: 202206
  2. MINERALS\VITAMINS [Concomitant]
     Active Substance: MINERALS\VITAMINS
     Dosage: UNK, OD
     Route: 048

REACTIONS (6)
  - Brain oedema [Unknown]
  - Tachyarrhythmia [Unknown]
  - Pleural thickening [Unknown]
  - Pleural effusion [Unknown]
  - Mediastinal shift [Unknown]
  - Lung hyperinflation [Unknown]
